FAERS Safety Report 5975026-7 (Version None)
Quarter: 2008Q4

REPORT INFORMATION
  Report Type: 
  Country: None (occurrence: None)
  Receive Date: 20081128
  Receipt Date: 20081120
  Transmission Date: 20090506
  Serious: Yes (Death)
  Sender: FDA-Public Use
  Company Number: 2008-04396

PATIENT
  Age: 72 Year
  Sex: Female

DRUGS (3)
  1. VELCADE [Suspect]
     Indication: MULTIPLE MYELOMA
  2. MELPHALAN (MELPHELAN) [Suspect]
     Indication: MULTIPLE MYELOMA
  3. PREDNISONE TAB [Concomitant]

REACTIONS (2)
  - BONE MARROW FAILURE [None]
  - INFECTION [None]
